FAERS Safety Report 20525998 (Version 4)
Quarter: 2023Q4

REPORT INFORMATION
  Report Type: Report from Study
  Country: US (occurrence: US)
  Receive Date: 20220228
  Receipt Date: 20231009
  Transmission Date: 20240110
  Serious: Yes (Death, Hospitalization, Other)
  Sender: FDA-Public Use
  Company Number: US-TAKEDA-US202007896

PATIENT
  Age: 68 Year
  Sex: Male

DRUGS (1)
  1. HUMAN IMMUNOGLOBULIN G [Suspect]
     Active Substance: HUMAN IMMUNOGLOBULIN G
     Indication: Hypogammaglobulinaemia
     Dosage: UNK
     Route: 042

REACTIONS (10)
  - Death [Fatal]
  - COVID-19 pneumonia [Unknown]
  - Spinal cord infection [Unknown]
  - Splenic haemorrhage [Unknown]
  - Loss of consciousness [Unknown]
  - Back injury [Unknown]
  - Localised infection [Unknown]
  - Tooth fracture [Unknown]
  - Splenic injury [Unknown]
  - Blood pressure increased [Unknown]

NARRATIVE: CASE EVENT DATE: 20230901
